FAERS Safety Report 4289084-1 (Version None)
Quarter: 2004Q1

REPORT INFORMATION
  Report Type: 
  Country: None (occurrence: None)
  Receive Date: 20040130
  Receipt Date: 20031215
  Transmission Date: 20041129
  Serious: No
  Sender: FDA-Public Use
  Company Number: WAES 0312USA01487

PATIENT

DRUGS (1)
  1. EMEND [Suspect]
     Dosage: PO
     Route: 048
     Dates: start: 20030101

REACTIONS (1)
  - HICCUPS [None]
